FAERS Safety Report 8712897 (Version 3)
Quarter: 2012Q4

REPORT INFORMATION
  Report Type: 
  Country: US (occurrence: US)
  Receive Date: 20120808
  Receipt Date: 20120905
  Transmission Date: 20130627
  Serious: Yes (Hospitalization, Other)
  Sender: FDA-Public Use
  Company Number: PHEH2012US013239

PATIENT
  Age: 87 Year
  Sex: Female

DRUGS (3)
  1. EXELON PATCH [Suspect]
     Indication: DEMENTIA ALZHEIMER^S TYPE
     Dosage: 9.5 mg, QD
     Route: 062
     Dates: start: 20090101
  2. NAMENDA [Concomitant]
     Dosage: UNK UKN, UNK
  3. SEROQUEL [Concomitant]
     Dosage: UNK UKN, UNK

REACTIONS (9)
  - Anaemia [Recovered/Resolved]
  - Cerebrovascular accident [Unknown]
  - Mobility decreased [Unknown]
  - Gait disturbance [Unknown]
  - Syncope [Recovered/Resolved]
  - Abnormal behaviour [Recovering/Resolving]
  - Muscle spasms [Recovered/Resolved]
  - Aggression [Recovering/Resolving]
  - Fall [Recovered/Resolved]
